FAERS Safety Report 12311906 (Version 1)
Quarter: 2016Q2

REPORT INFORMATION
  Report Type: Spontaneous
  Country: FR (occurrence: FR)
  Receive Date: 20160427
  Receipt Date: 20160427
  Transmission Date: 20160815
  Serious: Yes (Hospitalization)
  Sender: FDA-Public Use
  Company Number: FR-ASTRAZENECA-2016SE42896

PATIENT
  Age: 26354 Day
  Sex: Male

DRUGS (8)
  1. CIFLOX [Suspect]
     Active Substance: CIPROFLOXACIN
     Indication: PSEUDOMONAS INFECTION
     Route: 041
     Dates: start: 20160328, end: 20160401
  2. INEXIUM [Suspect]
     Active Substance: ESOMEPRAZOLE
     Indication: GASTROOESOPHAGEAL REFLUX DISEASE
     Route: 048
     Dates: start: 20160215, end: 20160401
  3. CIFLOX [Suspect]
     Active Substance: CIPROFLOXACIN
     Indication: PSEUDOMONAS INFECTION
     Route: 065
     Dates: start: 20160212, end: 20160302
  4. TIENAM [Suspect]
     Active Substance: CILASTATIN SODIUM\IMIPENEM
     Indication: PSEUDOMONAS INFECTION
     Route: 041
     Dates: start: 20160212, end: 20160225
  5. OXEOL [Concomitant]
     Active Substance: BAMBUTEROL HYDROCHLORIDE
     Indication: ASTHMA
  6. ZYLORIC [Suspect]
     Active Substance: ALLOPURINOL
     Indication: GOUT
     Route: 048
     Dates: start: 20160317, end: 20160331
  7. TIENAM [Suspect]
     Active Substance: CILASTATIN SODIUM\IMIPENEM
     Indication: PSEUDOMONAS INFECTION
     Route: 041
     Dates: start: 20160328, end: 20160330
  8. ISOPTINE [Concomitant]
     Active Substance: VERAPAMIL HYDROCHLORIDE
     Indication: HYPERTENSION

REACTIONS (2)
  - Gout [Unknown]
  - Acute generalised exanthematous pustulosis [Recovering/Resolving]

NARRATIVE: CASE EVENT DATE: 20160330
